FAERS Safety Report 10525555 (Version 3)
Quarter: 2014Q4

REPORT INFORMATION
  Report Type: Spontaneous
  Country: JP (occurrence: None)
  Receive Date: 20141015
  Receipt Date: 20141119
  Transmission Date: 20150528
  Serious: Yes (Other)
  Sender: FDA-Public Use
  Company Number: AXC-2014-000603

PATIENT
  Age: 65 Year
  Sex: Female

DRUGS (1)
  1. URSODEOXYCHOLIC ACID (URSODEOXYCHOLIC ACID) UNKNOWN) [Suspect]
     Active Substance: URSODIOL
     Indication: PRODUCT USED FOR UNKNOWN INDICATION
     Route: 048
     Dates: start: 2007

REACTIONS (3)
  - Biliary cirrhosis primary [None]
  - Iron deficiency anaemia [None]
  - Blood potassium decreased [None]

NARRATIVE: CASE EVENT DATE: 20140225
